FAERS Safety Report 8845609 (Version 1)
Quarter: 2012Q4

REPORT INFORMATION
  Report Type: 
  Country: US (occurrence: US)
  Receive Date: 20121017
  Receipt Date: 20121017
  Transmission Date: 20130627
  Serious: Yes (Other)
  Sender: FDA-Public Use
  Company Number: US-ROCHE-1133054

PATIENT
  Sex: Male

DRUGS (14)
  1. RITUXAN [Suspect]
     Indication: HAEMOLYTIC ANAEMIA
     Route: 065
  2. RITUXAN [Suspect]
     Indication: OFF LABEL USE
  3. OXYCONTIN [Concomitant]
     Route: 065
  4. AMBIEN [Concomitant]
     Dosage: every day at bed time
     Route: 065
  5. LORTAB [Concomitant]
     Dosage: prn
     Route: 065
  6. PROCARDIA [Concomitant]
  7. METOPROLOL [Concomitant]
  8. PERSANTINE [Concomitant]
  9. TRENTAL [Concomitant]
  10. ISOSORBIDE [Concomitant]
  11. FOLIC ACID [Concomitant]
  12. LIBRIUM [Concomitant]
  13. DARVOCET [Concomitant]
  14. TYLENOL [Concomitant]

REACTIONS (6)
  - Balance disorder [Unknown]
  - Asthenia [Unknown]
  - Fatigue [Unknown]
  - Bradyphrenia [Unknown]
  - Gait disturbance [Unknown]
  - Insomnia [Unknown]
